FAERS Safety Report 10200047 (Version 1)
Quarter: 2014Q2

REPORT INFORMATION
  Report Type: Spontaneous
  Country: US (occurrence: US)
  Receive Date: 20140527
  Receipt Date: 20140527
  Transmission Date: 20141212
  Serious: No
  Sender: FDA-Public Use
  Company Number: US-NOVEN-14US009200

PATIENT
  Age: 15 Year
  Sex: Female

DRUGS (9)
  1. DAYTRANA [Suspect]
     Indication: ATTENTION DEFICIT/HYPERACTIVITY DISORDER
     Dosage: 30 MG, QD
     Route: 062
     Dates: start: 2008
  2. TOPAMAX [Concomitant]
     Indication: MIGRAINE
     Dosage: 25 MG; 3 QAM + 4 QPM
     Route: 048
     Dates: start: 201309
  3. MAXALT [Concomitant]
     Indication: MIGRAINE
     Dosage: UNK
     Route: 048
     Dates: start: 201309
  4. ONDANSETRON HCL [Concomitant]
     Indication: NAUSEA
     Dosage: 8 MG Q 8HRS AS NEEDED
     Route: 048
     Dates: start: 201309
  5. ONDANSETRON HCL [Concomitant]
     Indication: DIZZINESS
  6. OSCAL                              /07357001/ [Concomitant]
     Indication: VITAMIN D
     Dosage: BID
     Route: 048
  7. OSCAL                              /07357001/ [Concomitant]
     Indication: BLOOD CALCIUM
  8. ALLEGRA [Concomitant]
     Indication: SEASONAL ALLERGY
     Dosage: 180 MG BID AS NEEDED
     Route: 048
  9. SINGULAIR [Concomitant]
     Indication: SEASONAL ALLERGY
     Dosage: 5 MG QD AS NEEDED
     Route: 048

REACTIONS (4)
  - Application site laceration [Not Recovered/Not Resolved]
  - Wrong technique in drug usage process [Not Recovered/Not Resolved]
  - Drug dose omission [Not Recovered/Not Resolved]
  - Product quality issue [Not Recovered/Not Resolved]
